FAERS Safety Report 8359559-4 (Version None)
Quarter: 2012Q2

REPORT INFORMATION
  Report Type: 
  Country: None (occurrence: None)
  Receive Date: 20120515
  Receipt Date: 20120509
  Transmission Date: 20120825
  Serious: Yes (Life-Threatening, Hospitalization)
  Sender: FDA-Public Use
  Company Number: NL-JNJFOC-20120314129

PATIENT
  Sex: Male
  Weight: 102 kg

DRUGS (4)
  1. STELARA [Suspect]
     Route: 058
     Dates: start: 20100201
  2. STELARA [Suspect]
     Route: 058
     Dates: start: 20100801, end: 20111026
  3. STELARA [Suspect]
     Route: 058
     Dates: start: 20120316, end: 20120316
  4. STELARA [Suspect]
     Indication: PSORIASIS
     Route: 058
     Dates: start: 20100501

REACTIONS (1)
  - CEREBROVASCULAR ACCIDENT [None]
